FAERS Safety Report 23669343 (Version 1)
Quarter: 2024Q1

REPORT INFORMATION
  Report Type: Spontaneous
  Country: US (occurrence: None)
  Receive Date: 20240325
  Receipt Date: 20240325
  Transmission Date: 20240410
  Serious: No
  Sender: FDA-Public Use
  Company Number: None

PATIENT
  Sex: Female

DRUGS (7)
  1. EVEROLIMUS [Suspect]
     Active Substance: EVEROLIMUS
     Indication: Carcinoid tumour
     Dosage: FREQUENCY : DAILY;?
     Route: 048
     Dates: start: 20240116
  2. EVEROLIMUS [Suspect]
     Active Substance: EVEROLIMUS
     Indication: Neoplasm malignant
  3. DEXAMETHASONE [Concomitant]
  4. LOVENOX [Concomitant]
     Active Substance: ENOXAPARIN SODIUM
  5. MYCAPSSA [Concomitant]
     Active Substance: OCTREOTIDE
  6. ONDANSETRON [Concomitant]
  7. SOMATULINE [Concomitant]

REACTIONS (2)
  - Surgery [None]
  - Therapy interrupted [None]
